FAERS Safety Report 9191273 (Version 1)
Quarter: 2013Q1

REPORT INFORMATION
  Report Type: Spontaneous
  Country: US (occurrence: US)
  Receive Date: 20130326
  Receipt Date: 20130326
  Transmission Date: 20140127
  Serious: No
  Sender: FDA-Public Use
  Company Number: US-ASTRAZENECA-2011SE57300

PATIENT
  Age: 62 Year
  Sex: Female

DRUGS (2)
  1. SEROQUEL XR [Suspect]
     Route: 048
  2. WELLBUTRIN [Concomitant]

REACTIONS (5)
  - Bipolar disorder [Unknown]
  - Adverse event [Unknown]
  - Drug intolerance [Unknown]
  - Weight increased [Unknown]
  - Dry mouth [Unknown]
